FAERS Safety Report 8045458-4 (Version None)
Quarter: 2012Q1

REPORT INFORMATION
  Report Type: 
  Country: None (occurrence: None)
  Receive Date: 20120113
  Receipt Date: 20120109
  Transmission Date: 20120608
  Serious: Yes (Other)
  Sender: FDA-Public Use
  Company Number: US-AMGEN-USASP2012001372

PATIENT
  Age: 57 Year
  Sex: Female

DRUGS (1)
  1. ENBREL [Suspect]
     Indication: OSTEOPOROSIS
     Dosage: 50 MG, QWK
     Dates: start: 20091211, end: 20100101

REACTIONS (13)
  - TRANSIENT ISCHAEMIC ATTACK [None]
  - AMNESIA [None]
  - RENAL FAILURE CHRONIC [None]
  - BACK PAIN [None]
  - OSTEOPOROSIS [None]
  - MUSCULOSKELETAL DISCOMFORT [None]
  - BLOOD CHOLESTEROL INCREASED [None]
  - CONDITION AGGRAVATED [None]
  - NEUROPATHY PERIPHERAL [None]
  - INJECTION SITE PAIN [None]
  - GRIP STRENGTH DECREASED [None]
  - PAIN [None]
  - ARTHRALGIA [None]
